FAERS Safety Report 23825981 (Version 1)
Quarter: 2024Q2

REPORT INFORMATION
  Report Type: Spontaneous
  Country: US (occurrence: None)
  Receive Date: 20240506
  Receipt Date: 20240506
  Transmission Date: 20240716
  Serious: Yes (Hospitalization)
  Sender: FDA-Public Use
  Company Number: None

PATIENT
  Age: 77 Year
  Sex: Male
  Weight: 84 kg

DRUGS (1)
  1. APIXABAN [Suspect]
     Active Substance: APIXABAN
     Dosage: FREQUENCY : TWICE A DAY;?
     Route: 048
     Dates: start: 20220730, end: 20220822

REACTIONS (6)
  - Gastrointestinal haemorrhage [None]
  - Mental status changes [None]
  - Microcytic anaemia [None]
  - Anaemia of chronic disease [None]
  - Thalassaemia [None]
  - Peptic ulcer [None]

NARRATIVE: CASE EVENT DATE: 20220805
